FAERS Safety Report 10405396 (Version 3)
Quarter: 2014Q4

REPORT INFORMATION
  Report Type: Report from Study
  Country: US (occurrence: US)
  Receive Date: 20140825
  Receipt Date: 20141003
  Transmission Date: 20150528
  Serious: Yes (Other)
  Sender: FDA-Public Use
  Company Number: US-BAYER-2014-091922

PATIENT
  Age: 61 Year
  Sex: Male

DRUGS (3)
  1. NEXAVAR [Suspect]
     Active Substance: SORAFENIB
     Indication: HEPATIC CANCER
     Dosage: 400 MG, BID
     Route: 048
     Dates: start: 20140523, end: 20140602
  2. NEXAVAR [Suspect]
     Active Substance: SORAFENIB
     Indication: HEPATIC CANCER
     Dosage: 400 MG, BID
     Route: 048
     Dates: start: 20140712, end: 20140716
  3. NEXAVAR [Suspect]
     Active Substance: SORAFENIB
     Indication: HEPATIC CANCER
     Dosage: 400 MG, HS
     Route: 048
     Dates: start: 20140731

REACTIONS (16)
  - Decreased appetite [None]
  - Pruritus [None]
  - Rash generalised [None]
  - Skin odour abnormal [None]
  - Diarrhoea [None]
  - Gait disturbance [None]
  - Dry skin [None]
  - Asthenia [Not Recovered/Not Resolved]
  - Faecal incontinence [None]
  - Pruritus [None]
  - Blood glucose increased [None]
  - Fatigue [Not Recovered/Not Resolved]
  - Abdominal pain [None]
  - Agitation [Not Recovered/Not Resolved]
  - Abasia [None]
  - Weight decreased [None]

NARRATIVE: CASE EVENT DATE: 201405
